FAERS Safety Report 9821152 (Version 1)
Quarter: 2014Q1

REPORT INFORMATION
  Report Type: Spontaneous
  Country: FR (occurrence: None)
  Receive Date: 20140114
  Receipt Date: 20140114
  Transmission Date: 20141002
  Serious: Yes (Hospitalization, Other)
  Sender: FDA-Public Use
  Company Number: AUR-APL-2014-00146

PATIENT
  Age: 79 Year
  Sex: Male

DRUGS (8)
  1. SIMVASTATIN(SIMVASTATIN) [Suspect]
     Route: 048
     Dates: start: 2004
  2. CORDARONE [Suspect]
     Route: 048
     Dates: start: 2004
  3. LASILIX (FUROSEMIDE) [Suspect]
     Route: 048
     Dates: start: 2004
  4. XATRAL LP [Suspect]
     Route: 048
     Dates: start: 2012
  5. STILNOX [Suspect]
  6. CARDENSIEL [Suspect]
     Dates: start: 2004
  7. PREVISCAN [Suspect]
  8. INEXIUM(ESOMEPRAZOLE MAGNESIUM) [Concomitant]

REACTIONS (15)
  - General physical health deterioration [None]
  - Asthenia [None]
  - Decreased appetite [None]
  - Constipation [None]
  - Dysphagia [None]
  - Back pain [None]
  - Rectal haemorrhage [None]
  - Pyelocaliectasis [None]
  - Retroperitoneal effusion [None]
  - Anaemia [None]
  - Renal failure [None]
  - Anuria [None]
  - Retroperitoneal fibrosis [None]
  - Autoimmune disorder [None]
  - Iatrogenic injury [None]
